FAERS Safety Report 8352094 (Version 3)
Quarter: 2013Q1

REPORT INFORMATION
  Report Type: Spontaneous
  Country: US (occurrence: US)
  Receive Date: 20120124
  Receipt Date: 20130225
  Transmission Date: 20140127
  Serious: Yes (Hospitalization)
  Sender: FDA-Public Use
  Company Number: PHEH2012US001799

PATIENT
  Age: 67 Year
  Sex: Female

DRUGS (3)
  1. MYFORTIC [Suspect]
     Indication: RENAL TRANSPLANT
     Dosage: 540 MG, BID
     Route: 048
  2. MYFORTIC [Suspect]
     Dosage: 720 MG, BID
     Route: 048
  3. MYFORTIC [Suspect]
     Dosage: 180 MG, TID
     Route: 048

REACTIONS (9)
  - Decubitus ulcer [Unknown]
  - Urinary tract infection [Unknown]
  - Gastroenteritis viral [Unknown]
  - Influenza like illness [Unknown]
  - Malaise [Unknown]
  - Asthenia [Unknown]
  - Aphagia [Unknown]
  - Blood glucose abnormal [Unknown]
  - Gait disturbance [Unknown]
